FAERS Safety Report 7073346-9 (Version None)
Quarter: 2010Q4

REPORT INFORMATION
  Report Type: 
  Country: None (occurrence: None)
  Receive Date: 20101029
  Receipt Date: 20100607
  Transmission Date: 20110411
  Serious: No
  Sender: FDA-Public Use
  Company Number: A0863323A

PATIENT
  Age: 52 Year
  Sex: Female

DRUGS (4)
  1. ADVAIR DISKUS 100/50 [Suspect]
     Indication: UPPER RESPIRATORY TRACT INFECTION
     Dosage: 1PUFF TWICE PER DAY
     Route: 055
     Dates: start: 20100605
  2. UNKNOWN MEDICATION [Concomitant]
  3. LYSINE [Concomitant]
  4. PREDNISONE [Concomitant]

REACTIONS (8)
  - DRY MOUTH [None]
  - GASTROOESOPHAGEAL REFLUX DISEASE [None]
  - GLOSSODYNIA [None]
  - HEADACHE [None]
  - HYPERCHLORHYDRIA [None]
  - LIP DRY [None]
  - THIRST [None]
  - VISION BLURRED [None]
